FAERS Safety Report 11632219 (Version 1)
Quarter: 2015Q4

REPORT INFORMATION
  Report Type: Spontaneous
  Country: US (occurrence: US)
  Receive Date: 20151015
  Receipt Date: 20151015
  Transmission Date: 20160304
  Serious: No
  Sender: FDA-Public Use
  Company Number: US-MYLANLABS-2015M1023998

PATIENT
  Sex: Female

DRUGS (1)
  1. ESTRADIOL TRANSDERMAL SYSTEM [Suspect]
     Active Substance: ESTRADIOL
     Dosage: 0.1 MG, QD, CHANGE BIW
     Route: 062
     Dates: start: 20140224

REACTIONS (2)
  - Malabsorption from application site [Not Recovered/Not Resolved]
  - Hot flush [Not Recovered/Not Resolved]
